FAERS Safety Report 20033991 (Version 1)
Quarter: 2021Q4

REPORT INFORMATION
  Report Type: Spontaneous
  Country: DE (occurrence: DE)
  Receive Date: 20211104
  Receipt Date: 20211104
  Transmission Date: 20220303
  Serious: Yes (Other)
  Sender: FDA-Public Use
  Company Number: DE-MYLANLABS-2021M1080697

PATIENT
  Age: 50 Year
  Sex: Female

DRUGS (1)
  1. ADALIMUMAB [Suspect]
     Active Substance: ADALIMUMAB
     Indication: Hidradenitis
     Dosage: 40 MILLIGRAM, QW COMBINING WEEKLY ADMINISTRATION OF 40 MG ADALIMUMAB
     Route: 058

REACTIONS (3)
  - Paradoxical drug reaction [Recovering/Resolving]
  - Pustular psoriasis [Recovering/Resolving]
  - Pyoderma gangrenosum [Recovering/Resolving]
